FAERS Safety Report 9146542 (Version 2)
Quarter: 2013Q1

REPORT INFORMATION
  Report Type: Report from Study
  Country: CA (occurrence: CA)
  Receive Date: 20130307
  Receipt Date: 20130329
  Transmission Date: 20140127
  Serious: Yes (Hospitalization)
  Sender: FDA-Public Use
  Company Number: CA-ABBOTT-12P-028-1022098-00

PATIENT
  Sex: Male
  Weight: 72.64 kg

DRUGS (5)
  1. LUPRON DEPOT [Suspect]
     Indication: PROSTATE CANCER
     Route: 030
     Dates: start: 20110608
  2. PRDNISONE [Concomitant]
     Indication: PRODUCT USED FOR UNKNOWN INDICATION
     Dosage: BID
     Dates: start: 20111114
  3. PERCOCET [Concomitant]
     Indication: PRODUCT USED FOR UNKNOWN INDICATION
     Dosage: 1-2
     Route: 048
     Dates: start: 20121026
  4. PANTOLOC [Concomitant]
     Indication: PRODUCT USED FOR UNKNOWN INDICATION
     Dosage: QD
     Route: 048
  5. NITROFURANTOIN [Concomitant]
     Indication: PRODUCT USED FOR UNKNOWN INDICATION
     Dates: start: 20120310, end: 20120320

REACTIONS (12)
  - Renal failure [Unknown]
  - Haemorrhage urinary tract [Unknown]
  - Renal disorder [Unknown]
  - Blood creatinine increased [Unknown]
  - Urinary tract infection [Unknown]
  - Jaundice [Unknown]
  - Haematuria [Recovered/Resolved]
  - Asthenia [Unknown]
  - Malignant neoplasm progression [Unknown]
  - Renal failure [Unknown]
  - Blood urine [Unknown]
  - Prostatic specific antigen increased [Unknown]
